FAERS Safety Report 23797387 (Version 2)
Quarter: 2024Q2

REPORT INFORMATION
  Report Type: Spontaneous
  Country: JP (occurrence: JP)
  Receive Date: 20240430
  Receipt Date: 20240506
  Transmission Date: 20240716
  Serious: Yes (Hospitalization, Other)
  Sender: FDA-Public Use
  Company Number: JP-TEVA-VS-3189397

PATIENT
  Age: 86 Year
  Sex: Male

DRUGS (1)
  1. DUTASTERIDE [Suspect]
     Active Substance: DUTASTERIDE
     Indication: Product used for unknown indication
     Dosage: DOSAGE IS UNKNOWN?IN THE MORNING? CAP. 0.5MG AV ^TAKEDA TEVA
     Route: 048
     Dates: start: 20240403, end: 20240403

REACTIONS (6)
  - Altered state of consciousness [Unknown]
  - Nausea [Unknown]
  - Hyponatraemia [Unknown]
  - Decreased appetite [Unknown]
  - KL-6 [Unknown]
  - Abnormal behaviour [Unknown]

NARRATIVE: CASE EVENT DATE: 20240403
